FAERS Safety Report 16938430 (Version 15)
Quarter: 2022Q3

REPORT INFORMATION
  Report Type: Report from Study
  Country: US (occurrence: US)
  Receive Date: 20191019
  Receipt Date: 20220923
  Transmission Date: 20221027
  Serious: Yes (Other)
  Sender: FDA-Public Use
  Company Number: US-NOVARTISPH-NVSC2019US005699

PATIENT
  Age: 38 Year
  Sex: Female
  Weight: 68.03 kg

DRUGS (14)
  1. TREPROSTINIL [Suspect]
     Active Substance: TREPROSTINIL
     Indication: Pulmonary arterial hypertension
     Dosage: 144 (NG/KG/MIN), CONT (STRENGTH: 10MG/ML)
     Route: 042
     Dates: start: 20190410
  2. TREPROSTINIL [Suspect]
     Active Substance: TREPROSTINIL
     Dosage: 147 (NG/KG/MIN), CONT
     Route: 042
  3. TREPROSTINIL [Suspect]
     Active Substance: TREPROSTINIL
     Dosage: 147 (NG/KG/MIN), CONT
     Route: 042
  4. TREPROSTINIL [Suspect]
     Active Substance: TREPROSTINIL
     Dosage: 151 NG/KG/MIN, CONT (STRENGTH: 5 MG/ML) CONTINUOUS
     Route: 042
  5. TREPROSTINIL [Suspect]
     Active Substance: TREPROSTINIL
     Dosage: 44 NG/KG/MIN, CONT
     Route: 065
  6. TREPROSTINIL [Suspect]
     Active Substance: TREPROSTINIL
     Dosage: 151 (STRENGTH: 5 MG/ML) (NG/KG/MIN) (CONT)
     Route: 042
  7. TREPROSTINIL [Suspect]
     Active Substance: TREPROSTINIL
     Dosage: 151 (NG/KG/MIN), CONT (STRENGTH 1MG/ML)
     Route: 042
  8. TREPROSTINIL [Suspect]
     Active Substance: TREPROSTINIL
     Dosage: 151 NG/KG/MIN, CONT, (STREGHTH: 5 MG/ML).
     Route: 042
  9. TREPROSTINIL [Suspect]
     Active Substance: TREPROSTINIL
     Dosage: (155 NG/KG/MIN) (STRENGTH: 5 MG/ML)
     Route: 042
  10. TREPROSTINIL [Suspect]
     Active Substance: TREPROSTINIL
     Dosage: (155 NG/KG/MIN), (STRENGTH-1MG/ML)
     Route: 065
  11. TREPROSTINIL [Suspect]
     Active Substance: TREPROSTINIL
     Dosage: (155 NG/KG/MIN), CONT (STRENGTH-1MG/ML)
     Route: 042
  12. TREPROSTINIL [Suspect]
     Active Substance: TREPROSTINIL
     Dosage: 155 NG/KG/MIN, CONT (STRENGTH: 1MG/ML)
     Route: 065
  13. REMODULIN [Suspect]
     Active Substance: TREPROSTINIL
     Indication: Product used for unknown indication
     Dosage: UNK
     Route: 065
  14. OPSUMIT [Concomitant]
     Active Substance: MACITENTAN
     Indication: Product used for unknown indication
     Dosage: UNK
     Route: 065

REACTIONS (17)
  - Haemorrhage [Unknown]
  - Urticaria [Unknown]
  - Cellulitis [Unknown]
  - Catheter site pain [Unknown]
  - Connective tissue disorder [Unknown]
  - Pain [Unknown]
  - Arthritis [Unknown]
  - Fall [Unknown]
  - Concomitant disease aggravated [Unknown]
  - Malaise [Unknown]
  - Hypersensitivity [Not Recovered/Not Resolved]
  - Joint lock [Unknown]
  - Nasal congestion [Unknown]
  - Oesophagitis [Unknown]
  - Retching [Unknown]
  - Localised infection [Unknown]
  - Pain in extremity [Unknown]

NARRATIVE: CASE EVENT DATE: 20200412
